FAERS Safety Report 22621407 (Version 2)
Quarter: 2023Q2

REPORT INFORMATION
  Report Type: Spontaneous
  Country: US (occurrence: US)
  Receive Date: 20230620
  Receipt Date: 20230626
  Transmission Date: 20230721
  Serious: No
  Sender: FDA-Public Use
  Company Number: US-SA-SAC20230616000316

PATIENT
  Age: 47 Year
  Sex: Female

DRUGS (14)
  1. DUPIXENT [Suspect]
     Active Substance: DUPILUMAB
     Indication: Dermatitis allergic
     Dosage: 600 MG, 1X
     Route: 058
     Dates: start: 20230613, end: 20230613
  2. DUPIXENT [Suspect]
     Active Substance: DUPILUMAB
     Indication: Dermatitis
  3. CLOBETASOL [Concomitant]
     Active Substance: CLOBETASOL
     Dosage: UNK
  4. KETOCONAZOLE [Concomitant]
     Active Substance: KETOCONAZOLE
     Dosage: UNK
  5. TYLENOL ARTHRITIS PAIN [Concomitant]
     Active Substance: ACETAMINOPHEN
     Dosage: UNK
  6. STOOL SOFTENER (DOCUSATE) [Concomitant]
     Active Substance: DOCUSATE
     Dosage: UNK
  7. VITAMINS [Concomitant]
     Active Substance: VITAMINS
     Dosage: UNK
  8. FAMOTIDINE [Concomitant]
     Active Substance: FAMOTIDINE
     Dosage: UNK
  9. MELOXICAM [Concomitant]
     Active Substance: MELOXICAM
     Dosage: UNK
  10. ALPRAZOLAM [Concomitant]
     Active Substance: ALPRAZOLAM
     Dosage: UNK
  11. HYDROCORTISONE [Concomitant]
     Active Substance: HYDROCORTISONE
     Dosage: UNK
  12. FIBER THERAPY [Concomitant]
     Dosage: UNK
  13. VITAMIN C [Concomitant]
     Active Substance: ASCORBIC ACID
     Dosage: UNK
  14. CALCIUM\VITAMIN D [Concomitant]
     Active Substance: CALCIUM\VITAMIN D
     Dosage: UNK

REACTIONS (2)
  - Dysgeusia [Unknown]
  - Product use in unapproved indication [Unknown]

NARRATIVE: CASE EVENT DATE: 20230613
